FAERS Safety Report 9617793 (Version 3)
Quarter: 2013Q4

REPORT INFORMATION
  Report Type: Spontaneous
  Country: AT (occurrence: AT)
  Receive Date: 20131011
  Receipt Date: 20131023
  Transmission Date: 20140711
  Serious: Yes (Hospitalization, Other)
  Sender: FDA-Public Use
  Company Number: AT-B.I. PHARMACEUTICALS,INC./RIDGEFIELD-2013-BI-28700AP

PATIENT
  Age: 77 Year
  Sex: Female
  Weight: 59 kg

DRUGS (5)
  1. PRADAXA [Suspect]
     Indication: CARDIOVERSION
     Dosage: 220 MG
     Dates: start: 20130616
  2. PRADAXA [Suspect]
     Indication: ATRIAL TACHYCARDIA
  3. CONCOR 5 [Concomitant]
  4. DAFLON 500 [Concomitant]
  5. THIAMAZOL [Concomitant]

REACTIONS (2)
  - Cerebrovascular accident [Unknown]
  - Drug ineffective [Unknown]
